FAERS Safety Report 24258293 (Version 1)
Quarter: 2024Q3

REPORT INFORMATION
  Report Type: Spontaneous
  Country: BR (occurrence: BR)
  Receive Date: 20240828
  Receipt Date: 20240828
  Transmission Date: 20241017
  Serious: Yes (Other)
  Sender: PFIZER
  Company Number: BR-PFIZER INC-PV202400110381

PATIENT
  Age: 31 Year
  Sex: Female

DRUGS (1)
  1. TALIGLUCERASE ALFA [Suspect]
     Active Substance: TALIGLUCERASE ALFA
     Indication: Gaucher^s disease
     Dosage: UNK
     Route: 042
     Dates: start: 202009, end: 20240215

REACTIONS (3)
  - Asphyxia [Recovered/Resolved]
  - Chest pain [Recovered/Resolved]
  - Malaise [Recovered/Resolved]
